FAERS Safety Report 14749663 (Version 3)
Quarter: 2018Q2

REPORT INFORMATION
  Report Type: Spontaneous
  Country: BE (occurrence: BE)
  Receive Date: 20180411
  Receipt Date: 20180522
  Transmission Date: 20180711
  Serious: Yes (Other)
  Sender: FDA-Public Use
  Company Number: BE-BAXTER-2018BAX007443

PATIENT
  Age: 93 Year
  Sex: Female
  Weight: 44.4 kg

DRUGS (5)
  1. EAU POUR INJECTIONS (VIAFLO) [Suspect]
     Active Substance: WATER
     Indication: MEDICATION DILUTION
     Dosage: OVER 24HOURS
     Route: 042
     Dates: start: 20180226, end: 20180228
  2. CERNEVIT [Suspect]
     Active Substance: VITAMINS
     Indication: NUTRITIONAL SUPPLEMENTATION
     Dosage: OVER 24 HOURS
     Route: 042
     Dates: start: 20180226, end: 20180228
  3. CLINOLEIC  20% [Suspect]
     Active Substance: OLIVE OIL\SOYBEAN OIL
     Indication: NUTRITIONAL SUPPLEMENTATION
     Dosage: OVER 24 HOURS
     Route: 042
     Dates: start: 20180226, end: 20180228
  4. OLIMEL E [Suspect]
     Active Substance: AMINO ACIDS\DEXTROSE\ELECTROLYTES NOS\SOYBEAN OIL
     Indication: PARENTERAL NUTRITION
     Dosage: OVER 24 HOURS, 1500 ML INFUSE WAS WITHDRAWN AND ANOTHER WAS SETUP WITHOUT EXTRAVASATION.
     Route: 042
     Dates: start: 20180226, end: 20180228
  5. ADDAVEN [Suspect]
     Active Substance: ELECTROLYTES NOS\MINERALS
     Indication: NUTRITIONAL SUPPLEMENTATION
     Dosage: OVER 24 HOURS
     Route: 042
     Dates: start: 20180226, end: 20180228

REACTIONS (2)
  - Oedema peripheral [Unknown]
  - Extravasation [Unknown]

NARRATIVE: CASE EVENT DATE: 20180228
